FAERS Safety Report 9061650 (Version 1)
Quarter: 2013Q1

REPORT INFORMATION
  Report Type: Spontaneous
  Country: GB (occurrence: GB)
  Receive Date: 20130204
  Receipt Date: 20130204
  Transmission Date: 20140127
  Serious: Yes (Hospitalization)
  Sender: FDA-Public Use
  Company Number: PHFR2013GB000981

PATIENT
  Age: 48 Year
  Sex: Female
  Weight: 35 kg

DRUGS (4)
  1. OCTREOTIDE [Suspect]
     Indication: SHORT-BOWEL SYNDROME
     Dosage: 100 UG TID
     Route: 058
     Dates: start: 20130111, end: 20130118
  2. CODEINE PHOSPHATE [Concomitant]
  3. LOPERAMIDE [Concomitant]
  4. OMEPRAZOLE [Concomitant]

REACTIONS (1)
  - Renal failure acute [Recovering/Resolving]
